FAERS Safety Report 23590120 (Version 5)
Quarter: 2025Q4

REPORT INFORMATION
  Report Type: Spontaneous
  Country: US (occurrence: US)
  Receive Date: 20240304
  Receipt Date: 20251229
  Transmission Date: 20260118
  Serious: Yes (Other)
  Sender: CIPLA
  Company Number: US-CIPLA LTD.-2024US02241

PATIENT

DRUGS (8)
  1. SAJAZIR [Suspect]
     Active Substance: ICATIBANT ACETATE
     Indication: Interstitial lung disease
     Dosage: 30 MILLIGRAM, PRN (3^S- 30 MG PFS 3 ML- 3/PK)
     Route: 058
     Dates: start: 20230613
  2. SAJAZIR [Suspect]
     Active Substance: ICATIBANT ACETATE
     Indication: Acquired complement deficiency disease
     Dosage: 30 MILLIGRAM, PRN (3^S- 30 MG PFS 3 ML- 3/PK)
     Route: 058
     Dates: start: 20230613
  3. SAJAZIR [Suspect]
     Active Substance: ICATIBANT ACETATE
     Dosage: 30 MILLIGRAM, PRN (3^S- 30 MG PFS 3 ML- 3/PK)
     Route: 058
  4. SAJAZIR [Suspect]
     Active Substance: ICATIBANT ACETATE
     Dosage: 30 MILLIGRAM, PRN (3^S- 30 MG PFS 3 ML- 3/PK)
     Route: 058
  5. METOPROLOL SUCCINATE [Concomitant]
     Active Substance: METOPROLOL SUCCINATE
     Indication: Product used for unknown indication
     Dosage: UNK
     Route: 065
  6. TAKHZYRO [Concomitant]
     Active Substance: LANADELUMAB-FLYO
     Indication: Product used for unknown indication
     Dosage: UNK
     Route: 065
  7. PROMETHAZINE HYDROCHLORIDE [Concomitant]
     Active Substance: PROMETHAZINE HYDROCHLORIDE
     Indication: Product used for unknown indication
     Dosage: UNK
     Route: 065
  8. RUCONEST [Concomitant]
     Active Substance: CONESTAT ALFA
     Indication: Product used for unknown indication
     Dosage: UNK
     Route: 065

REACTIONS (7)
  - Cardiac valve disease [Unknown]
  - Hereditary angioedema [Unknown]
  - Off label use [Unknown]
  - Product dose omission issue [Unknown]
  - Dysphagia [Unknown]
  - Dehydration [Unknown]
  - Mycotoxicosis [Unknown]
